FAERS Safety Report 23702767 (Version 1)
Quarter: 2024Q2

REPORT INFORMATION
  Report Type: Spontaneous
  Country: GB (occurrence: GB)
  Receive Date: 20240403
  Receipt Date: 20240403
  Transmission Date: 20240716
  Serious: Yes (Other)
  Sender: FDA-Public Use
  Company Number: None

PATIENT
  Age: 25 Year
  Sex: Female
  Weight: 137 kg

DRUGS (5)
  1. CITALOPRAM [Suspect]
     Active Substance: CITALOPRAM\CITALOPRAM HYDROBROMIDE
     Indication: Ill-defined disorder
     Dosage: UNK
     Route: 065
     Dates: start: 20240321
  2. CITALOPRAM [Concomitant]
     Active Substance: CITALOPRAM\CITALOPRAM HYDROBROMIDE
     Indication: Ill-defined disorder
     Dosage: 1 DOSAGE FORM, QD (TAKE ONE TABLET EVERY DAY)
     Route: 065
     Dates: start: 20240314, end: 20240321
  3. FLUOXETINE [Concomitant]
     Active Substance: FLUOXETINE HYDROCHLORIDE
     Indication: Ill-defined disorder
     Dosage: UNK UNK, QD (TAKE ONE EVERY DAY)
     Route: 065
     Dates: start: 20240321
  4. LORATADINE [Concomitant]
     Active Substance: LORATADINE
     Indication: Ill-defined disorder
     Dosage: UNK UNK, QD (ONE TO BE TAKEN EACH DAY)
     Route: 065
     Dates: start: 20210517, end: 20240108
  5. MOMETASONE [Concomitant]
     Active Substance: MOMETASONE
     Indication: Ill-defined disorder
     Dosage: UNK UNK, QD (TWO SPRAYS DAILY)
     Route: 065
     Dates: start: 20210517

REACTIONS (1)
  - Orthostatic hypertension [Recovered/Resolved]

NARRATIVE: CASE EVENT DATE: 20240327
